FAERS Safety Report 7003427-7 (Version None)
Quarter: 2010Q3

REPORT INFORMATION
  Report Type: 
  Country: None (occurrence: None)
  Receive Date: 20100920
  Receipt Date: 20100820
  Transmission Date: 20110219
  Serious: No
  Sender: FDA-Public Use
  Company Number: US-PFIZER INC-2010106095

PATIENT
  Sex: Female
  Weight: 83.9 kg

DRUGS (6)
  1. GLIPIZIDE [Suspect]
     Indication: DIABETES MELLITUS
     Dosage: 5 MG, 1X/DAY
     Dates: start: 20090101
  2. HYDROCHLOROTHIAZIDE [Concomitant]
     Dosage: 12.5 MG, UNK
  3. WELLBUTRIN XL [Concomitant]
     Dosage: 300 MG, UNK
  4. PRAVASTATIN [Concomitant]
     Dosage: 40 MG, UNK
  5. ZEGERID [Concomitant]
     Dosage: UNK
  6. AMBIEN [Concomitant]
     Dosage: 12.5 MG, UNK

REACTIONS (1)
  - PAINFUL DEFAECATION [None]
